FAERS Safety Report 19084484 (Version 3)
Quarter: 2021Q3

REPORT INFORMATION
  Report Type: Spontaneous
  Country: US (occurrence: US)
  Receive Date: 20210401
  Receipt Date: 20210701
  Transmission Date: 20211014
  Serious: No
  Sender: FDA-Public Use
  Company Number: US-BEH-2021130180

PATIENT
  Age: 74 Year
  Sex: Female

DRUGS (3)
  1. HIZENTRA [Suspect]
     Active Substance: HUMAN IMMUNOGLOBULIN G
     Dosage: 12 GRAM, QW, 5 SITES, 12 ML/SITE
     Route: 058
     Dates: start: 201708
  2. HIZENTRA [Suspect]
     Active Substance: HUMAN IMMUNOGLOBULIN G
     Indication: IMMUNODEFICIENCY COMMON VARIABLE
     Dosage: 10 GRAM VIAL
     Route: 058
  3. HIZENTRA [Suspect]
     Active Substance: HUMAN IMMUNOGLOBULIN G
     Dosage: UNK
     Route: 058
     Dates: start: 20210303, end: 20210303

REACTIONS (11)
  - Infusion site urticaria [Unknown]
  - Swelling [Recovered/Resolved]
  - Recalled product administered [Unknown]
  - Infusion site erythema [Unknown]
  - Infusion site pruritus [Unknown]
  - Chills [Unknown]
  - Infusion site erythema [Unknown]
  - Infusion site irritation [Recovered/Resolved]
  - Headache [Unknown]
  - Chills [Unknown]
  - Infusion site swelling [Unknown]

NARRATIVE: CASE EVENT DATE: 2021
